FAERS Safety Report 8366127-7 (Version None)
Quarter: 2012Q2

REPORT INFORMATION
  Report Type: 
  Country: None (occurrence: None)
  Receive Date: 20120517
  Receipt Date: 20120514
  Transmission Date: 20120825
  Serious: Yes (Other)
  Sender: FDA-Public Use
  Company Number: DK-ELI_LILLY_AND_COMPANY-DK201204009142

PATIENT
  Sex: Male

DRUGS (1)
  1. OLANZAPINE [Suspect]
     Indication: SCHIZOPHRENIA
     Dosage: UNK, UNKNOWN

REACTIONS (5)
  - MUSCLE SPASMS [None]
  - UNRESPONSIVE TO STIMULI [None]
  - DIZZINESS [None]
  - CONVULSION [None]
  - ASPIRATION [None]
